FAERS Safety Report 24632381 (Version 5)
Quarter: 2025Q4

REPORT INFORMATION
  Report Type: Spontaneous
  Country: US (occurrence: US)
  Receive Date: 20241118
  Receipt Date: 20251018
  Transmission Date: 20260118
  Serious: Yes (Other)
  Sender: CSL BEHRING
  Company Number: US-BEH-2024182671

PATIENT
  Sex: Female
  Weight: 78.912 kg

DRUGS (9)
  1. PRIVIGEN [Suspect]
     Active Substance: HUMAN IMMUNOGLOBULIN G
     Indication: Myasthenia gravis
     Dosage: 40 MG
     Route: 065
     Dates: start: 2012
  2. PRIVIGEN [Suspect]
     Active Substance: HUMAN IMMUNOGLOBULIN G
     Dosage: 50 MG
     Route: 065
  3. PRIVIGEN [Suspect]
     Active Substance: HUMAN IMMUNOGLOBULIN G
     Dosage: 60 MG
     Route: 065
  4. PRIVIGEN [Suspect]
     Active Substance: HUMAN IMMUNOGLOBULIN G
     Dosage: 35 MG DAILY 2 DAYS PER MONTH
     Route: 042
     Dates: start: 202411
  5. PRIVIGEN [Suspect]
     Active Substance: HUMAN IMMUNOGLOBULIN G
     Dosage: 60 G
     Route: 065
  6. PRIVIGEN [Suspect]
     Active Substance: HUMAN IMMUNOGLOBULIN G
     Dosage: 0.4 PER DOSE
     Route: 065
  7. PYRIDOSTIGMINE BROMIDE [Suspect]
     Active Substance: PYRIDOSTIGMINE BROMIDE
     Route: 065
  8. MYCOPHENOLATE MOFETIL [Suspect]
     Active Substance: MYCOPHENOLATE MOFETIL
     Route: 065
  9. VYVGART [Suspect]
     Active Substance: EFGARTIGIMOD ALFA-FCAB
     Dosage: UNK
     Route: 065

REACTIONS (39)
  - Myasthenia gravis [Unknown]
  - Pulmonary congestion [Unknown]
  - Myasthenia gravis [Unknown]
  - Fall [Unknown]
  - Headache [Unknown]
  - Pain [Unknown]
  - Neck pain [Unknown]
  - Oropharyngeal pain [Unknown]
  - Cough [Unknown]
  - Diarrhoea [Unknown]
  - Nasopharyngitis [Unknown]
  - Bronchitis [Unknown]
  - Herpes zoster [Unknown]
  - Vein disorder [Unknown]
  - Sinus congestion [Unknown]
  - Diplopia [Unknown]
  - Nausea [Unknown]
  - Therapy change [Unknown]
  - Therapy cessation [Unknown]
  - Fatigue [Unknown]
  - Somnolence [Unknown]
  - Sluggishness [Unknown]
  - Asthenia [Unknown]
  - Seasonal allergy [Unknown]
  - Tremor [Unknown]
  - Drug eruption [Unknown]
  - Pruritus [Unknown]
  - Burning sensation [Unknown]
  - Herpes zoster [Unknown]
  - Nerve injury [Unknown]
  - Asthma [Not Recovered/Not Resolved]
  - Nasal congestion [Not Recovered/Not Resolved]
  - Muscular weakness [Unknown]
  - Therapy change [Unknown]
  - Illness [Unknown]
  - Influenza like illness [Unknown]
  - Dysphagia [Unknown]
  - Speech disorder [Unknown]
  - Tremor [Unknown]
